FAERS Safety Report 20323847 (Version 1)
Quarter: 2022Q1

REPORT INFORMATION
  Report Type: Report from Study
  Country: US (occurrence: US)
  Receive Date: 20220111
  Receipt Date: 20220111
  Transmission Date: 20220423
  Serious: Yes (Other)
  Sender: FDA-Public Use
  Company Number: US-Taiho Oncology Inc-EU-2021-03864

PATIENT
  Age: 70 Year
  Sex: Female
  Weight: 51.166 kg

DRUGS (12)
  1. LONSURF [Suspect]
     Active Substance: TIPIRACIL HYDROCHLORIDE\TRIFLURIDINE
     Indication: Colon cancer
     Dosage: CYCLE NUMBER 1.
     Route: 048
     Dates: start: 20210426
  2. LONSURF [Suspect]
     Active Substance: TIPIRACIL HYDROCHLORIDE\TRIFLURIDINE
     Indication: Colorectal adenocarcinoma
     Dosage: UNKNOWN CYCLE
     Route: 048
     Dates: start: 20211206
  3. BEVACIZUMAB [Suspect]
     Active Substance: BEVACIZUMAB
     Indication: Product used for unknown indication
     Dosage: 51 CYCLES.
     Route: 042
     Dates: start: 201709
  4. CALCIUM [Concomitant]
     Active Substance: CALCIUM
     Dosage: 500/D
  5. CITALOPRAM [Concomitant]
     Active Substance: CITALOPRAM HYDROBROMIDE
  6. GABAPENTIN [Concomitant]
     Active Substance: GABAPENTIN
  7. VITAMINS [Concomitant]
     Active Substance: VITAMINS
  8. ONDANSETRON [Concomitant]
     Active Substance: ONDANSETRON
  9. PRIMIDONE [Concomitant]
     Active Substance: PRIMIDONE
  10. VITAMIN B12 [Concomitant]
     Active Substance: CYANOCOBALAMIN
  11. VITAMIN D [Concomitant]
     Active Substance: VITAMIN D NOS
  12. XIIDRA [Concomitant]
     Active Substance: LIFITEGRAST

REACTIONS (7)
  - Ascites [Unknown]
  - White blood cell count decreased [Unknown]
  - Neutrophil count decreased [Unknown]
  - Anaemia [Recovering/Resolving]
  - Weight decreased [Unknown]
  - Fatigue [Unknown]
  - Diarrhoea [Unknown]

NARRATIVE: CASE EVENT DATE: 20211027
